FAERS Safety Report 9893440 (Version 1)
Quarter: 2014Q1

REPORT INFORMATION
  Report Type: Spontaneous
  Country: PL (occurrence: PL)
  Receive Date: 20140213
  Receipt Date: 20140213
  Transmission Date: 20141002
  Serious: Yes (Hospitalization)
  Sender: FDA-Public Use
  Company Number: PL-SA-2014SA017743

PATIENT
  Age: 71 Year
  Sex: Female

DRUGS (3)
  1. CLOPIDOGREL BISULFATE [Suspect]
     Indication: MYOCARDIAL INFARCTION
     Route: 065
  2. ASPIRIN [Concomitant]
     Indication: MYOCARDIAL INFARCTION
  3. HEPARIN [Concomitant]
     Dosage: HEPARIN BOLUS 70 U/KG EQUAL TO 267 S

REACTIONS (4)
  - Platelet aggregation increased [Recovered/Resolved]
  - Drug resistance [Unknown]
  - Cardiogenic shock [Recovered/Resolved]
  - Cardiac arrest [Recovered/Resolved]
